FAERS Safety Report 7352880-8 (Version None)
Quarter: 2011Q1

REPORT INFORMATION
  Report Type: 
  Country: None (occurrence: None)
  Receive Date: 20110315
  Receipt Date: 20110303
  Transmission Date: 20110831
  Serious: Yes (Hospitalization)
  Sender: FDA-Public Use
  Company Number: US-JNJFOC-20110100841

PATIENT
  Sex: Male
  Weight: 89 kg

DRUGS (5)
  1. SUDAFED 12 HOUR [Concomitant]
     Indication: HEADACHE
  2. SUDAFED 12 HOUR [Concomitant]
     Indication: EAR PAIN
  3. EXTRA STRENGTH TYLENOL [Suspect]
     Indication: EAR PAIN
     Dosage: INGESTED 40 PILLS IN 2 DAYS 1500MG-2000MG EVERY 3 HOURS
     Route: 048
  4. BOTOX [Concomitant]
     Indication: SKIN LESION
  5. EXTRA STRENGTH TYLENOL [Suspect]
     Indication: HEADACHE
     Dosage: INGESTED 40 PILLS IN 2 DAYS 1500MG-2000MG EVERY 3 HOURS
     Route: 048

REACTIONS (4)
  - RENAL FAILURE ACUTE [None]
  - ACUTE HEPATIC FAILURE [None]
  - HEPATIC ENCEPHALOPATHY [None]
  - ACCIDENTAL OVERDOSE [None]
